FAERS Safety Report 8696099 (Version 2)
Quarter: 2012Q4

REPORT INFORMATION
  Report Type: 
  Country: US (occurrence: US)
  Receive Date: 20120801
  Receipt Date: 20121129
  Transmission Date: 20130627
  Serious: No
  Sender: FDA-Public Use
  Company Number: US-009507513-2012SP022027

PATIENT
  Sex: Female
  Weight: 142.86 kg

DRUGS (4)
  1. IMPLANON [Suspect]
     Indication: PRODUCT USED FOR UNKNOWN INDICATION
     Dates: start: 201011
  2. XANAX [Concomitant]
     Indication: PRODUCT USED FOR UNKNOWN INDICATION
  3. CITALOPRAM [Concomitant]
     Indication: PRODUCT USED FOR UNKNOWN INDICATION
  4. VITAMINS (UNSPECIFIED) [Concomitant]
     Indication: PREGNANCY
     Dosage: 27 mg, UNK
     Dates: start: 20120502

REACTIONS (3)
  - Pregnancy with implant contraceptive [Recovered/Resolved]
  - Incorrect route of drug administration [Unknown]
  - Exposure during pregnancy [None]
